FAERS Safety Report 6713404-9 (Version None)
Quarter: 2010Q2

REPORT INFORMATION
  Report Type: 
  Country: None (occurrence: None)
  Receive Date: 20100505
  Receipt Date: 20100420
  Transmission Date: 20101027
  Serious: Yes (Other)
  Sender: FDA-Public Use
  Company Number: 2010SCPR000534

PATIENT
  Age: 33 Year
  Sex: Male

DRUGS (1)
  1. METHYLPREDNISOLONE [Suspect]
     Indication: ENCEPHALOPATHY
     Dosage: 2.5 G, INTRAVENOUS
     Route: 042

REACTIONS (2)
  - HEPATITIS ACUTE [None]
  - HEPATOTOXICITY [None]
